FAERS Safety Report 16839354 (Version 6)
Quarter: 2020Q3

REPORT INFORMATION
  Report Type: Spontaneous
  Country: US (occurrence: US)
  Receive Date: 20190923
  Receipt Date: 20200721
  Transmission Date: 20201102
  Serious: No
  Sender: FDA-Public Use
  Company Number: US-PFIZER INC-2019406489

PATIENT
  Age: 79 Year
  Sex: Male
  Weight: 80.73 kg

DRUGS (24)
  1. CALCIUM [Concomitant]
     Active Substance: CALCIUM
     Dosage: 500 MG, DAILY
     Route: 048
  2. GLUCOSAMINE COMPLEX [CHONDROITIN SULFATE;GLUCOSAMINE] [Concomitant]
     Dosage: 1 DF, DAILY (1500 COMPLEX)
     Route: 048
  3. VYNDAQEL [Suspect]
     Active Substance: TAFAMIDIS MEGLUMINE
     Indication: AMYLOIDOSIS
     Dosage: 80 MG, DAILY (4 CAPSULES DAILY)
     Route: 048
     Dates: start: 20190402
  4. TYLENOL [Concomitant]
     Active Substance: ACETAMINOPHEN
     Indication: BACK PAIN
  5. ZYLOPRIM [Concomitant]
     Active Substance: ALLOPURINOL
     Dosage: 100 MG, DAILY
     Route: 048
     Dates: start: 20190221
  6. GLUCOSAMINE COMPLEX [CHONDROITIN SULFATE;GLUCOSAMINE] [Concomitant]
     Dosage: 1500 MG, 2X/DAY
     Route: 048
  7. XANAX [Concomitant]
     Active Substance: ALPRAZOLAM
     Dosage: 0.5 MG, AS NEEDED (NIGHTLY)
     Route: 048
  8. LIPITOR [Concomitant]
     Active Substance: ATORVASTATIN CALCIUM
     Dosage: 20 MG, DAILY
     Route: 048
     Dates: start: 20170112
  9. NITROSTAT [Concomitant]
     Active Substance: NITROGLYCERIN
     Indication: CHEST PAIN
     Dosage: 0.4 MG, AS NEEDED (PLACE 1 TABLET UNDER THE TONGUE EVERY 5 (5) MINUTES) AS NEEDED.
     Route: 060
  10. VITAMIN E [Concomitant]
     Active Substance: .ALPHA.-TOCOPHEROL
     Dosage: 400 IU, DAILY
     Route: 048
  11. VYNDAQEL [Suspect]
     Active Substance: TAFAMIDIS MEGLUMINE
     Indication: CARDIAC AMYLOIDOSIS
  12. TYLENOL [Concomitant]
     Active Substance: ACETAMINOPHEN
     Indication: PYREXIA
     Dosage: 650 MG, AS NEEDED (EVERY 4 (FOUR)) HOURS AS NEEDED.
     Route: 048
  13. VITAMIN C [Concomitant]
     Active Substance: ASCORBIC ACID
     Dosage: 1000 MG, DAILY
     Route: 048
  14. CINNAMON BARK [Concomitant]
     Active Substance: CINNAMON\HERBALS
     Dosage: 2000 MG, DAILY
     Route: 048
     Dates: start: 20190301
  15. FISH OIL [Concomitant]
     Active Substance: FISH OIL
     Dosage: 2000 MG, 1X/DAY
  16. COREG [Concomitant]
     Active Substance: CARVEDILOL
     Indication: HYPOTENSION
     Dosage: 3.125 MG, DAILY (TAKE 1 TABLET)
     Route: 048
     Dates: start: 20151015
  17. VITAMIN D3 [Concomitant]
     Active Substance: CHOLECALCIFEROL
     Dosage: 2000 IU, DAILY
     Route: 048
  18. CO ENZYM Q10 [Concomitant]
     Dosage: 100 MG, DAILY
     Route: 048
  19. DEMADEX [Concomitant]
     Active Substance: TORSEMIDE
     Dosage: 20 MG, DAILY
     Route: 048
     Dates: start: 20190402
  20. CORDARONE [Concomitant]
     Active Substance: AMIODARONE HYDROCHLORIDE
     Dosage: 200 MG, DAILY
     Route: 048
     Dates: start: 20190109
  21. COREG [Concomitant]
     Active Substance: CARVEDILOL
     Indication: HYPERTENSION
  22. VYNDAQEL [Suspect]
     Active Substance: TAFAMIDIS MEGLUMINE
     Indication: FAMILIAL AMYLOIDOSIS
     Dosage: 80 MG, UNK
  23. PLAVIX [Concomitant]
     Active Substance: CLOPIDOGREL BISULFATE
     Dosage: 75 MG, DAILY
     Route: 048
     Dates: start: 20190803
  24. AMBIEN [Concomitant]
     Active Substance: ZOLPIDEM TARTRATE
     Dosage: 10 MG, DAILY (NIGHTLY)
     Route: 048
     Dates: start: 201805

REACTIONS (2)
  - Confusional state [Unknown]
  - Fatigue [Unknown]
